FAERS Safety Report 9784583 (Version 4)
Quarter: 2014Q3

REPORT INFORMATION
  Report Type: Spontaneous
  Country: US (occurrence: US)
  Receive Date: 20131226
  Receipt Date: 20140916
  Transmission Date: 20150326
  Serious: No
  Sender: FDA-Public Use
  Company Number: US-TEVA-449308USA

PATIENT
  Sex: Male
  Weight: 109.41 kg

DRUGS (1)
  1. ACTIQ [Suspect]
     Active Substance: FENTANYL CITRATE
     Indication: BACK PAIN
     Dates: start: 2006, end: 2010

REACTIONS (3)
  - Off label use [Not Recovered/Not Resolved]
  - Dental caries [Not Recovered/Not Resolved]
  - Gingival pain [Not Recovered/Not Resolved]
